FAERS Safety Report 25200664 (Version 2)
Quarter: 2025Q2

REPORT INFORMATION
  Report Type: Spontaneous
  Country: US (occurrence: US)
  Receive Date: 20250415
  Receipt Date: 20250616
  Transmission Date: 20250716
  Serious: Yes (Other)
  Sender: BAYER HEALTHCARE PHARMACEUTICALS INC.
  Company Number: US-BAYER-2025A050283

PATIENT
  Age: 77 Year
  Sex: Male

DRUGS (17)
  1. ADEMPAS [Suspect]
     Active Substance: RIOCIGUAT
     Indication: Pulmonary hypertension
  2. ADEMPAS [Suspect]
     Active Substance: RIOCIGUAT
     Indication: Pulmonary arterial hypertension
     Dosage: 2.5 MG, TID
     Dates: start: 20220829
  3. SEPTRA DS [Concomitant]
     Active Substance: SULFAMETHOXAZOLE\TRIMETHOPRIM
  4. ROSUVASTATIN [Concomitant]
     Active Substance: ROSUVASTATIN
  5. HUMULIN R [Concomitant]
     Active Substance: INSULIN HUMAN
  6. INSULIN GLARGINE [Concomitant]
     Active Substance: INSULIN GLARGINE
  7. ALBUTEROL SULFATE [Concomitant]
     Active Substance: ALBUTEROL SULFATE
  8. MUPIROCIN [Concomitant]
     Active Substance: MUPIROCIN
  9. TORSEMIDE [Concomitant]
     Active Substance: TORSEMIDE
  10. SPIRONOLACTONE [Concomitant]
     Active Substance: SPIRONOLACTONE
  11. XARELTO [Concomitant]
     Active Substance: RIVAROXABAN
  12. LOSARTAN [Concomitant]
     Active Substance: LOSARTAN
  13. GLIPIZIDE [Concomitant]
     Active Substance: GLIPIZIDE
  14. TIMOLOL MALEATE [Concomitant]
     Active Substance: TIMOLOL MALEATE
  15. POTASSIUM CHLORIDE [Concomitant]
     Active Substance: POTASSIUM CHLORIDE
  16. FAMOTIDINE [Concomitant]
     Active Substance: FAMOTIDINE
  17. VITAMIN D3 [Concomitant]
     Active Substance: CHOLECALCIFEROL

REACTIONS (6)
  - Cough [None]
  - Rhinorrhoea [None]
  - Subcutaneous abscess [None]
  - Tenderness [None]
  - Induration [None]
  - Infected dermal cyst [None]

NARRATIVE: CASE EVENT DATE: 20250408
